FAERS Safety Report 9388760 (Version 1)
Quarter: 2013Q3

REPORT INFORMATION
  Report Type: Report from Study
  Country: ES (occurrence: ES)
  Receive Date: 20130708
  Receipt Date: 20130708
  Transmission Date: 20140515
  Serious: Yes (Other)
  Sender: FDA-Public Use
  Company Number: ES-GLAXOSMITHKLINE-B0904996A

PATIENT
  Sex: 0

DRUGS (6)
  1. MELPHALAN [Suspect]
     Indication: STEM CELL TRANSPLANT
     Route: 042
  2. BORTEZOMIB [Suspect]
     Indication: STEM CELL TRANSPLANT
     Route: 042
  3. DEXAMETHASONE [Suspect]
     Indication: STEM CELL TRANSPLANT
     Route: 048
  4. FLUDARABINE [Suspect]
     Indication: STEM CELL TRANSPLANT
     Route: 042
  5. CICLOSPORIN [Suspect]
     Indication: PROPHYLAXIS AGAINST GRAFT VERSUS HOST DISEASE
  6. METHOTREXATE [Suspect]
     Indication: PROPHYLAXIS AGAINST GRAFT VERSUS HOST DISEASE
     Route: 065

REACTIONS (1)
  - Pulmonary toxicity [Unknown]
